FAERS Safety Report 5132516-7 (Version None)
Quarter: 2006Q4

REPORT INFORMATION
  Report Type: 
  Country: None (occurrence: None)
  Receive Date: 20061017
  Receipt Date: 20061002
  Transmission Date: 20070319
  Serious: Yes (Other)
  Sender: FDA-Public Use
  Company Number: US200610000438

PATIENT
  Sex: Female

DRUGS (3)
  1. HUMALOG [Suspect]
     Dates: start: 20060601
  2. HUMALOG PEN (HUMALOG PEN) [Concomitant]
  3. INSULIN (INSULIN) [Concomitant]

REACTIONS (1)
  - NEOPLASM MALIGNANT [None]
